FAERS Safety Report 10063587 (Version 1)
Quarter: 2014Q2

REPORT INFORMATION
  Report Type: Spontaneous
  Country: ES (occurrence: ES)
  Receive Date: 20140407
  Receipt Date: 20140407
  Transmission Date: 20141212
  Serious: Yes (Life-Threatening)
  Sender: FDA-Public Use
  Company Number: ES-009507513-1404ESP002517

PATIENT
  Age: 70 Year
  Sex: Male
  Weight: 65 kg

DRUGS (1)
  1. JANUMET [Suspect]
     Indication: TYPE 2 DIABETES MELLITUS
     Dosage: 50 MG, BID, EVERY 12 HOURS, END DATE: UNKNOWN; INDICATION FOR USE: TYPE 2 DIABETES MELLITUS
     Route: 048
     Dates: start: 20130528

REACTIONS (1)
  - Pancreatic carcinoma [Not Recovered/Not Resolved]
